FAERS Safety Report 7703947-3 (Version None)
Quarter: 2011Q3

REPORT INFORMATION
  Report Type: 
  Country: None (occurrence: None)
  Receive Date: 20110823
  Receipt Date: 20110818
  Transmission Date: 20111222
  Serious: Yes (Hospitalization)
  Sender: FDA-Public Use
  Company Number: FR-SANOFI-AVENTIS-2011SA046091

PATIENT
  Age: 70 Year
  Sex: Male

DRUGS (10)
  1. LANTUS [Suspect]
     Route: 058
     Dates: end: 20110601
  2. LASIX [Suspect]
     Route: 048
     Dates: start: 20101101, end: 20110614
  3. LERCANIDIPINE [Suspect]
     Route: 048
     Dates: start: 20100501, end: 20110601
  4. ASPIRIN [Suspect]
     Route: 048
  5. IRBESARTAN AND HYDROCHLOROTHIAZIDE [Suspect]
     Route: 048
     Dates: start: 20100801, end: 20110601
  6. AMOXICILLIN [Concomitant]
     Dates: start: 20110525, end: 20110531
  7. AMOXICILLIN [Concomitant]
     Indication: RHINITIS
     Dates: start: 20110525, end: 20110531
  8. METFORMIN HCL [Suspect]
     Route: 048
     Dates: start: 20100501, end: 20110601
  9. BISOPROLOL FUMARATE [Suspect]
     Route: 048
     Dates: start: 20100201
  10. REPAGLINIDE [Suspect]
     Route: 048
     Dates: start: 20100201, end: 20110601

REACTIONS (2)
  - EOSINOPHILIA [None]
  - RENAL FAILURE [None]
